FAERS Safety Report 6576953-2 (Version None)
Quarter: 2010Q1

REPORT INFORMATION
  Report Type: 
  Country: None (occurrence: None)
  Receive Date: 20100210
  Receipt Date: 20100203
  Transmission Date: 20100710
  Serious: Yes (Other)
  Sender: FDA-Public Use
  Company Number: FR-ABBOTT-10P-056-0623969-00

PATIENT
  Age: 30 Year
  Sex: Male

DRUGS (6)
  1. RITONAVIR [Suspect]
     Indication: ANTIRETROVIRAL THERAPY
     Dosage: NOT REPORTED
  2. DOCETAXEL [Suspect]
     Indication: CHEMOTHERAPY
     Dosage: 60 MG M**-2
  3. ZIDOVUDINE [Concomitant]
     Indication: ANTIRETROVIRAL THERAPY
     Dosage: NOT REPORTED
  4. LAMIVUDINE [Concomitant]
     Indication: ANTIRETROVIRAL THERAPY
     Dosage: NOT REPORTED
  5. SAQUINAVIR [Concomitant]
     Indication: ANTIRETROVIRAL THERAPY
     Dosage: NOT REPORTED
  6. PACLITAXEL [Concomitant]
     Indication: CHEMOTHERAPY
     Dosage: NOT REPORTED

REACTIONS (3)
  - DRUG INTERACTION [None]
  - FEBRILE NEUTROPENIA [None]
  - MUCOSAL INFLAMMATION [None]
